FAERS Safety Report 12928751 (Version 1)
Quarter: 2016Q4

REPORT INFORMATION
  Report Type: Report from Study
  Country: US (occurrence: US)
  Receive Date: 20161110
  Receipt Date: 20161110
  Transmission Date: 20170207
  Serious: Yes (Hospitalization)
  Sender: FDA-Public Use
  Company Number: US-ASTELLAS-2016US044214

PATIENT
  Age: 70 Year
  Sex: Female

DRUGS (14)
  1. ERLOTINIB [Suspect]
     Active Substance: ERLOTINIB
     Indication: NON-SMALL CELL LUNG CANCER
     Dosage: UNK UNK, UNKNOWN FREQ.
     Route: 065
  2. CALCIUM CARBONATE. [Concomitant]
     Active Substance: CALCIUM CARBONATE
     Indication: ROUTINE HEALTH MAINTENANCE
     Route: 048
     Dates: start: 20160223
  3. GLUCOSAMINE CHONDROITIN COMPLEX    /06278301/ [Concomitant]
     Indication: ROUTINE HEALTH MAINTENANCE
     Dosage: 250-200 MG, ONCE DAILY
     Route: 048
     Dates: start: 20160223
  4. MORPHINE [Concomitant]
     Active Substance: MORPHINE
     Indication: PAIN IN EXTREMITY
     Route: 048
     Dates: start: 20160428
  5. ZOLPIDEM [Concomitant]
     Active Substance: ZOLPIDEM\ZOLPIDEM TARTRATE
     Indication: INSOMNIA
     Dosage: 5 MG, ONCE DAILY AT BEDTIME
     Route: 048
     Dates: start: 20160301
  6. ACETAMINOPHEN W/OXYCODONE [Concomitant]
     Active Substance: ACETAMINOPHEN\OXYCODONE HYDROCHLORIDE
     Indication: PAIN IN EXTREMITY
     Dosage: 325-5 MG, 1 IN 1 AS NEEDED
     Route: 048
     Dates: start: 20160414
  7. GABAPENTIN. [Concomitant]
     Active Substance: GABAPENTIN
     Indication: ORAL PAIN
     Route: 048
     Dates: start: 20160128
  8. MELOXICAM. [Concomitant]
     Active Substance: MELOXICAM
     Indication: PAIN IN EXTREMITY
     Dosage: 7.5 MG, 1 IN 1 AS NEEDED
     Route: 048
     Dates: start: 20160126
  9. NAPROXEN SODIUM. [Concomitant]
     Active Substance: NAPROXEN SODIUM
     Indication: PAIN IN EXTREMITY
     Dosage: 220 MG, 1 IN 1 AS NEEDED
     Route: 048
     Dates: start: 20160223
  10. VITAMIN D3 [Concomitant]
     Active Substance: CHOLECALCIFEROL
     Indication: ROUTINE HEALTH MAINTENANCE
     Route: 048
     Dates: start: 20160223
  11. ATORVASTATIN [Concomitant]
     Active Substance: ATORVASTATIN
     Indication: DYSLIPIDAEMIA
     Dosage: 20 MG, ONCE DAILY AT BEDTIME
     Route: 048
     Dates: start: 20160209
  12. DULOXETINE. [Concomitant]
     Active Substance: DULOXETINE
     Indication: DEPRESSION
     Route: 048
     Dates: start: 20160204
  13. BEVACIZUMAB [Suspect]
     Active Substance: BEVACIZUMAB
     Indication: NON-SMALL CELL LUNG CANCER
     Dosage: UNK, UNKNOWN FREQ.
     Route: 065
  14. HYDROCORTISONE. [Concomitant]
     Active Substance: HYDROCORTISONE
     Indication: DERMATITIS ACNEIFORM
     Route: 065
     Dates: start: 20160516

REACTIONS (1)
  - Haemoptysis [Unknown]

NARRATIVE: CASE EVENT DATE: 20161029
